FAERS Safety Report 23722463 (Version 1)
Quarter: 2024Q2

REPORT INFORMATION
  Report Type: Spontaneous
  Country: US (occurrence: None)
  Receive Date: 20240408
  Receipt Date: 20240408
  Transmission Date: 20240715
  Serious: No
  Sender: FDA-Public Use
  Company Number: None

PATIENT
  Age: 61 Month
  Sex: Male
  Weight: 58.5 kg

DRUGS (3)
  1. SIMBRINZA [Suspect]
     Active Substance: BRIMONIDINE TARTRATE\BRINZOLAMIDE
     Dosage: FREQUENCY : TWICE A DAY;?
     Route: 047
     Dates: start: 20240221, end: 20240308
  2. blood pressure meds [Concomitant]
  3. anxiety [Concomitant]

REACTIONS (7)
  - Chemical burn [None]
  - Facial pain [None]
  - Eyelid disorder [None]
  - Ulcer [None]
  - Scar [None]
  - Thermal burn [None]
  - Swelling face [None]

NARRATIVE: CASE EVENT DATE: 20240308
